FAERS Safety Report 13492126 (Version 2)
Quarter: 2017Q2

REPORT INFORMATION
  Report Type: Report from Study
  Country: AR (occurrence: AR)
  Receive Date: 20170427
  Receipt Date: 20170512
  Transmission Date: 20170830
  Serious: Yes (Hospitalization)
  Sender: FDA-Public Use
  Company Number: PHHY2017AR061632

PATIENT
  Sex: Male

DRUGS (2)
  1. ILARIS [Suspect]
     Active Substance: CANAKINUMAB
     Dosage: 1 DF, ONCE EVERY 21 DAYS
     Route: 065
  2. ILARIS [Suspect]
     Active Substance: CANAKINUMAB
     Indication: STILL^S DISEASE
     Dosage: 1 DF, QMO
     Route: 065
     Dates: start: 20130617

REACTIONS (8)
  - Histiocytosis haematophagic [Recovering/Resolving]
  - Juvenile idiopathic arthritis [Recovering/Resolving]
  - Pyrexia [Recovering/Resolving]
  - Fall [Recovering/Resolving]
  - Haemarthrosis [Recovering/Resolving]
  - Joint injury [Recovering/Resolving]
  - Blood disorder [Recovering/Resolving]
  - Bacterial infection [Recovering/Resolving]
